FAERS Safety Report 23133498 (Version 5)
Quarter: 2024Q1

REPORT INFORMATION
  Report Type: Spontaneous
  Country: US (occurrence: US)
  Receive Date: 20231101
  Receipt Date: 20240206
  Transmission Date: 20240410
  Serious: No
  Sender: FDA-Public Use
  Company Number: US-PFIZER INC-202300319575

PATIENT
  Age: 10 Year
  Sex: Male
  Weight: 21.32 kg

DRUGS (3)
  1. GENOTROPIN [Suspect]
     Active Substance: SOMATROPIN
     Dosage: 5MG; 1.1ML SUBCUTANEOUS IN HIS BUTT EVERY NIGHT
     Dates: start: 202303
  2. GENOTROPIN [Suspect]
     Active Substance: SOMATROPIN
     Dosage: 0.9 MG, DAILY
  3. GUANFACINE [Concomitant]
     Active Substance: GUANFACINE
     Indication: Attention deficit hyperactivity disorder
     Dosage: 2MG PILL FORM EVERY DAY BY MOUTH
     Dates: start: 202303

REACTIONS (2)
  - Liquid product physical issue [Unknown]
  - Off label use [Unknown]
